FAERS Safety Report 5239681-1 (Version None)
Quarter: 2007Q1

REPORT INFORMATION
  Report Type: 
  Country: None (occurrence: None)
  Receive Date: 20070212
  Receipt Date: 20070202
  Transmission Date: 20070707
  Serious: Yes (Hospitalization)
  Sender: FDA-Public Use
  Company Number: 2007SP002056

PATIENT
  Age: 76 Year
  Sex: Male

DRUGS (15)
  1. TEMOZOLOMIDE (S-P) (TEMOZOLOMIDE) [Suspect]
     Indication: GLIOMA
     Dosage: SEE IMAGE
     Dates: start: 20061206, end: 20061210
  2. TEMOZOLOMIDE (S-P) (TEMOZOLOMIDE) [Suspect]
     Indication: GLIOMA
     Dosage: SEE IMAGE
     Dates: start: 20070118, end: 20070122
  3. ZOFRAN [Concomitant]
  4. MEDROL [Concomitant]
  5. SOLU-MEDROL [Concomitant]
  6. CIPROFLOXACIN [Concomitant]
  7. FLAGYL [Concomitant]
  8. ACETAMINOPHEN W/ PROPOXYPHENE HCL [Concomitant]
  9. NEURONTIN [Concomitant]
  10. DIFFU K [Concomitant]
  11. IMOVANE [Concomitant]
  12. MEDROL [Concomitant]
  13. MOVICOL [Concomitant]
  14. NEXIUM [Concomitant]
  15. DAFALGAN [Concomitant]

REACTIONS (13)
  - BALANCE DISORDER [None]
  - CARDIAC FLUTTER [None]
  - CONFUSIONAL STATE [None]
  - DEHYDRATION [None]
  - DRUG PRESCRIBING ERROR [None]
  - FALL [None]
  - GRAND MAL CONVULSION [None]
  - MALAISE [None]
  - MUSCULAR WEAKNESS [None]
  - RENAL IMPAIRMENT [None]
  - STAPHYLOCOCCAL SEPSIS [None]
  - TREMOR [None]
  - URINARY INCONTINENCE [None]
